FAERS Safety Report 5583955-1 (Version None)
Quarter: 2008Q1

REPORT INFORMATION
  Report Type: 
  Country: None (occurrence: None)
  Receive Date: 20080103
  Receipt Date: 20080103
  Transmission Date: 20080703
  Serious: Yes (Hospitalization)
  Sender: FDA-Public Use
  Company Number: None

PATIENT
  Age: 64 Year
  Sex: Female

DRUGS (3)
  1. OLMESARTAN/HYDROCHLOROTHIAZIDE 45/25 [Suspect]
     Indication: HYPERTENSION
     Dosage: 45/25MG DAILY PO
     Route: 048
  2. IBUPROFEN [Suspect]
     Indication: PAIN
  3. ASPIRIN [Suspect]
     Dosage: ASPIRIN 325MG -3-6 TABS PRN PO
     Route: 048

REACTIONS (5)
  - DEHYDRATION [None]
  - DIARRHOEA [None]
  - HAEMODIALYSIS [None]
  - RENAL FAILURE ACUTE [None]
  - RENAL TUBULAR NECROSIS [None]
